FAERS Safety Report 7311876-2 (Version None)
Quarter: 2011Q1

REPORT INFORMATION
  Report Type: 
  Country: None (occurrence: None)
  Receive Date: 20110224
  Receipt Date: 20110214
  Transmission Date: 20110831
  Serious: Yes (Other)
  Sender: FDA-Public Use
  Company Number: US-JNJFOC-20110205872

PATIENT
  Sex: Male

DRUGS (1)
  1. NICORETTE CINNAMON SURGE [Suspect]
     Indication: TOBACCO ABUSE
     Dosage: 4MG (5-7 PIECES A DAY)
     Route: 048

REACTIONS (12)
  - HEART RATE IRREGULAR [None]
  - HICCUPS [None]
  - MALAISE [None]
  - DRUG ADMINISTRATION ERROR [None]
  - EXERCISE TOLERANCE DECREASED [None]
  - MIDDLE INSOMNIA [None]
  - CHEST DISCOMFORT [None]
  - DYSPNOEA EXERTIONAL [None]
  - ASTHMA [None]
  - DIZZINESS [None]
  - FLATULENCE [None]
  - MENTAL IMPAIRMENT [None]
